FAERS Safety Report 5479997-7 (Version None)
Quarter: 2007Q4

REPORT INFORMATION
  Report Type: 
  Country: None (occurrence: None)
  Receive Date: 20071008
  Receipt Date: 20070926
  Transmission Date: 20080405
  Serious: Yes (Other)
  Sender: FDA-Public Use
  Company Number: US-PFIZER INC-2007047919

PATIENT
  Sex: Female
  Weight: 73.9 kg

DRUGS (7)
  1. LYRICA [Suspect]
     Indication: NEUROPATHY PERIPHERAL
     Route: 048
  2. LYRICA [Suspect]
     Indication: INTERVERTEBRAL DISC DEGENERATION
  3. LORTAB [Concomitant]
  4. ALL OTHER THERAPEUTIC PRODUCTS [Concomitant]
  5. TOPROL-XL [Concomitant]
  6. HYDROCHLOROTHIAZIDE [Concomitant]
  7. VERAPAMIL [Concomitant]

REACTIONS (3)
  - HEART RATE INCREASED [None]
  - HYPERTENSION [None]
  - STOMATITIS [None]
